FAERS Safety Report 21225995 (Version 1)
Quarter: 2022Q3

REPORT INFORMATION
  Report Type: Spontaneous
  Country: AU (occurrence: AU)
  Receive Date: 20220818
  Receipt Date: 20220818
  Transmission Date: 20221026
  Serious: Yes (Other)
  Sender: FDA-Public Use
  Company Number: AU-BRISTOL-MYERS SQUIBB COMPANY-2022-088205

PATIENT
  Age: 67 Year
  Sex: Male
  Weight: 70 kg

DRUGS (10)
  1. NIVOLUMAB [Suspect]
     Active Substance: NIVOLUMAB
     Indication: Metastatic malignant melanoma
     Dosage: ADJUVANT THERAPY
     Route: 065
     Dates: start: 202102, end: 202107
  2. NIVOLUMAB [Suspect]
     Active Substance: NIVOLUMAB
     Dosage: CYCLE 1
     Route: 065
     Dates: start: 20210730
  3. NIVOLUMAB [Suspect]
     Active Substance: NIVOLUMAB
     Dosage: CYCLE 2
     Route: 065
     Dates: start: 20210820
  4. NIVOLUMAB [Suspect]
     Active Substance: NIVOLUMAB
     Dosage: CYCLE 4
     Route: 065
     Dates: start: 20211125
  5. NIVOLUMAB [Suspect]
     Active Substance: NIVOLUMAB
     Dosage: MAINTENANCE THERAPY
     Route: 065
     Dates: start: 20220107
  6. NIVOLUMAB [Suspect]
     Active Substance: NIVOLUMAB
     Dosage: UPTO CYCLE 7 MAINTENANCE THERAPY
     Route: 065
     Dates: start: 20220624
  7. NIVOLUMAB [Suspect]
     Active Substance: NIVOLUMAB
     Dosage: UPTO CYCLE 8 MAINTENANCE THERAPY
     Route: 065
     Dates: start: 20220722
  8. IPILIMUMAB [Suspect]
     Active Substance: IPILIMUMAB
     Indication: Metastatic malignant melanoma
     Dosage: CYCLE 1
     Route: 065
     Dates: start: 20210730
  9. IPILIMUMAB [Suspect]
     Active Substance: IPILIMUMAB
     Dosage: CYCLE 2
     Route: 065
     Dates: start: 20210820
  10. IPILIMUMAB [Suspect]
     Active Substance: IPILIMUMAB
     Dosage: CYCLE 4
     Route: 065
     Dates: start: 20211125

REACTIONS (6)
  - Pyrexia [Unknown]
  - Malignant neoplasm progression [Unknown]
  - Chronic gastritis [Unknown]
  - Gastritis erosive [Unknown]
  - Ulcer [Unknown]
  - Drug ineffective [Unknown]

NARRATIVE: CASE EVENT DATE: 20210820
